FAERS Safety Report 8532716-X (Version None)
Quarter: 2012Q3

REPORT INFORMATION
  Report Type: 
  Country: None (occurrence: None)
  Receive Date: 20120724
  Receipt Date: 20120718
  Transmission Date: 20120928
  Serious: Yes (Hospitalization, Other)
  Sender: FDA-Public Use
  Company Number: PHHY2012CA056310

PATIENT
  Sex: Male

DRUGS (2)
  1. ZOLEDRONOC ACID [Suspect]
     Indication: OSTEOPOROSIS
     Route: 042
     Dates: start: 20110824
  2. ANTIBIOTICS [Concomitant]

REACTIONS (5)
  - PLEURAL EFFUSION [None]
  - POST PROCEDURAL INFECTION [None]
  - PNEUMONIA [None]
  - SEPSIS [None]
  - GALLBLADDER DISORDER [None]
